FAERS Safety Report 6185007-9 (Version None)
Quarter: 2009Q2

REPORT INFORMATION
  Report Type: 
  Country: None (occurrence: None)
  Receive Date: 20090511
  Receipt Date: 20090320
  Transmission Date: 20091009
  Serious: No
  Sender: FDA-Public Use
  Company Number: A0774596A

PATIENT
  Sex: Male

DRUGS (3)
  1. COREG CR [Suspect]
     Indication: HYPERTENSION
     Dosage: 40MG PER DAY
     Route: 048
     Dates: start: 20081101
  2. AVANDAMET [Concomitant]
  3. PRAVASTATIN [Concomitant]

REACTIONS (1)
  - DRUG INEFFECTIVE [None]
